FAERS Safety Report 23853090 (Version 1)
Quarter: 2024Q2

REPORT INFORMATION
  Report Type: Spontaneous
  Country: ES (occurrence: ES)
  Receive Date: 20240514
  Receipt Date: 20240514
  Transmission Date: 20240716
  Serious: Yes (Hospitalization, Other)
  Sender: FDA-Public Use
  Company Number: None

PATIENT
  Age: 64 Year
  Sex: Female

DRUGS (2)
  1. LEMTRADA [Suspect]
     Active Substance: ALEMTUZUMAB
     Indication: Multiple sclerosis
     Dosage: 1 DF, QD (12MG/100ML 0.9% SALINE SOLUTION (MAGISTRAL FORMULA))
     Route: 042
     Dates: start: 20180806, end: 20180810
  2. LEMTRADA [Suspect]
     Active Substance: ALEMTUZUMAB
     Dosage: 1 DF, QD (12MG/100ML SALINE SOLUTION (MAGISTRAL FORMULA))
     Route: 042
     Dates: start: 20190806, end: 20190808

REACTIONS (2)
  - Gastroenteritis eosinophilic [Not Recovered/Not Resolved]
  - Protein-losing gastroenteropathy [Not Recovered/Not Resolved]

NARRATIVE: CASE EVENT DATE: 20201023
